FAERS Safety Report 5097127-0 (Version None)
Quarter: 2006Q3

REPORT INFORMATION
  Report Type: 
  Country: None (occurrence: None)
  Receive Date: 20060901
  Receipt Date: 20060817
  Transmission Date: 20061208
  Serious: Yes (Hospitalization)
  Sender: FDA-Public Use
  Company Number: ABRIP-06-0357

PATIENT
  Age: 46 Year
  Sex: Female
  Weight: 82.5547 kg

DRUGS (1)
  1. ABRAXANE [Suspect]
     Indication: BREAST CANCER METASTATIC
     Dosage: 507 MG DAY/1 DOSE, INTRAVENOUS DRIP
     Route: 041
     Dates: start: 20060505, end: 20060505

REACTIONS (5)
  - MUCOSAL INFLAMMATION [None]
  - NEUTROPENIA [None]
  - OESOPHAGITIS [None]
  - ORAL CANDIDIASIS [None]
  - THROMBOCYTOPENIA [None]
